FAERS Safety Report 8978456 (Version 2)
Quarter: 2013Q1

REPORT INFORMATION
  Report Type: Spontaneous
  Country: US (occurrence: US)
  Receive Date: 20121221
  Receipt Date: 20130115
  Transmission Date: 20140127
  Serious: Yes (Hospitalization)
  Sender: FDA-Public Use
  Company Number: US-BIOGENIDEC-2012BI061877

PATIENT
  Age: 58 Year
  Sex: Female

DRUGS (8)
  1. TYSABRI [Suspect]
     Indication: MULTIPLE SCLEROSIS
     Route: 042
     Dates: start: 20120503, end: 20120727
  2. AMPYRA [Concomitant]
     Route: 048
     Dates: start: 20120314
  3. LEXAPRO [Concomitant]
     Route: 048
  4. ADVIL [Concomitant]
     Route: 048
  5. ALBUTEROL [Concomitant]
  6. MULTIVITAMIN [Concomitant]
     Route: 048
  7. SIMVASTATIN [Concomitant]
     Route: 048
  8. VITAMIN D3 [Concomitant]
     Route: 048

REACTIONS (3)
  - Fall [Recovered/Resolved]
  - Fatigue [Unknown]
  - Progressive multiple sclerosis [Recovered/Resolved]
